FAERS Safety Report 6519402-2 (Version None)
Quarter: 2009Q4

REPORT INFORMATION
  Report Type: 
  Country: None (occurrence: None)
  Receive Date: 20091228
  Receipt Date: 20091221
  Transmission Date: 20100525
  Serious: Yes (Other)
  Sender: FDA-Public Use
  Company Number: IT-MERCK-0912ITA00021

PATIENT
  Age: 67 Year
  Sex: Female

DRUGS (10)
  1. FOSAMAX PLUS D [Suspect]
     Indication: RHEUMATOID ARTHRITIS
     Route: 048
     Dates: start: 20040101, end: 20091101
  2. LANSOPRAZOLE [Concomitant]
     Route: 065
  3. CARVEDILOL [Concomitant]
     Route: 065
  4. RAMIPRIL [Concomitant]
     Route: 065
  5. STRONTIUM RANELATE [Concomitant]
     Route: 065
  6. CALCIUM CARBONATE [Concomitant]
     Route: 065
  7. CYANOCOBALAMIN AND FOLIC ACID [Concomitant]
     Route: 065
  8. ZOCOR [Concomitant]
     Route: 065
  9. METHOTREXATE [Concomitant]
     Route: 065
  10. POLYSACCHARIDE IRON COMPLEX [Concomitant]
     Route: 065

REACTIONS (2)
  - OFF LABEL USE [None]
  - OSTEONECROSIS [None]
